FAERS Safety Report 9264054 (Version 3)
Quarter: 2013Q3

REPORT INFORMATION
  Report Type: Report from Study
  Country: US (occurrence: US)
  Receive Date: 20130430
  Receipt Date: 20130725
  Transmission Date: 20140515
  Serious: Yes (Other)
  Sender: FDA-Public Use
  Company Number: US-MYLANLABS-2013S1008931

PATIENT
  Age: 19 Year
  Sex: Female

DRUGS (2)
  1. AMNESTEEM CAPSULES [Suspect]
     Route: 048
     Dates: start: 20130311, end: 20130417
  2. ORTHO TRI-CYCLEN [Concomitant]

REACTIONS (2)
  - Blighted ovum [Not Recovered/Not Resolved]
  - Exposure during pregnancy [Recovered/Resolved]
